FAERS Safety Report 21059651 (Version 1)
Quarter: 2022Q3

REPORT INFORMATION
  Report Type: Spontaneous
  Country: US (occurrence: US)
  Receive Date: 20220708
  Receipt Date: 20220708
  Transmission Date: 20221027
  Serious: No
  Sender: FDA-Public Use
  Company Number: US-PFIZER INC-202200938562

PATIENT
  Age: 43 Year
  Sex: Female
  Weight: 104.33 kg

DRUGS (1)
  1. DESVENLAFAXINE SUCCINATE [Suspect]
     Active Substance: DESVENLAFAXINE SUCCINATE
     Dosage: ONE 50 MG TABLET AND ONE 100MG TABLET ONCE A DAY
     Route: 048

REACTIONS (4)
  - Drug ineffective [Unknown]
  - Crying [Unknown]
  - Emotional disorder [Unknown]
  - Anger [Unknown]
